FAERS Safety Report 7150612-X (Version None)
Quarter: 2010Q4

REPORT INFORMATION
  Report Type: 
  Country: None (occurrence: None)
  Receive Date: 20101210
  Receipt Date: 20101202
  Transmission Date: 20110411
  Serious: Yes (Other)
  Sender: FDA-Public Use
  Company Number: DE-PFIZER INC-2010163288

PATIENT
  Age: 22 Year
  Sex: Female
  Weight: 55 kg

DRUGS (2)
  1. SAYANA [Suspect]
     Indication: CONTRACEPTION
     Dosage: 1 DF, EVERY 3 MONTHS
     Route: 058
     Dates: start: 20100819
  2. SAYANA [Suspect]
     Dosage: 1 DF, EVERY 3 MONTHS
     Route: 058
     Dates: start: 20101118

REACTIONS (2)
  - CIRCULATORY COLLAPSE [None]
  - DIZZINESS [None]
